FAERS Safety Report 19168466 (Version 1)
Quarter: 2021Q2

REPORT INFORMATION
  Report Type: Other
  Country: IN (occurrence: IN)
  Receive Date: 20210422
  Receipt Date: 20210422
  Transmission Date: 20210717
  Serious: Yes (Death, Other)
  Sender: FDA-Public Use
  Company Number: IN-ROCHE-2810225

PATIENT

DRUGS (4)
  1. MYCOPHENOLATE MOFETIL. [Suspect]
     Active Substance: MYCOPHENOLATE MOFETIL
     Indication: MYOSITIS
     Route: 065
  2. AZATHIOPRINE. [Suspect]
     Active Substance: AZATHIOPRINE
     Indication: MYOSITIS
     Route: 065
  3. RITUXIMAB. [Suspect]
     Active Substance: RITUXIMAB
     Indication: MYOSITIS
     Route: 065
  4. METHOTREXATE. [Suspect]
     Active Substance: METHOTREXATE
     Indication: MYOSITIS
     Route: 065

REACTIONS (18)
  - Haemophagocytic lymphohistiocytosis [Unknown]
  - Klebsiella infection [Unknown]
  - Candida infection [Unknown]
  - Burkholderia cepacia complex infection [Unknown]
  - Gastrointestinal ulcer [Unknown]
  - Sepsis [Unknown]
  - JC virus infection [Unknown]
  - HIV infection [Unknown]
  - Gastrointestinal haemorrhage [Unknown]
  - Peritonitis [Unknown]
  - Infection [Fatal]
  - Pseudomonas infection [Unknown]
  - Scrub typhus [Unknown]
  - Cytomegalovirus infection [Fatal]
  - Gastrointestinal perforation [Unknown]
  - Pneumonia [Unknown]
  - Intestinal sepsis [Unknown]
  - Acinetobacter infection [Unknown]
